FAERS Safety Report 17917211 (Version 2)
Quarter: 2020Q3

REPORT INFORMATION
  Report Type: Report from Study
  Country: US (occurrence: US)
  Receive Date: 20200619
  Receipt Date: 20200710
  Transmission Date: 20201103
  Serious: Yes (Other)
  Sender: FDA-Public Use
  Company Number: US-EMD SERONO-9134296

PATIENT
  Age: 64 Year
  Sex: Female

DRUGS (6)
  1. OXYBUTYNIN. [Suspect]
     Active Substance: OXYBUTYNIN CHLORIDE
     Indication: BLADDER SPASM
     Dosage: THERAPY START DATE: 02 OCT 2019.
  2. MAVENCLAD [Suspect]
     Active Substance: CLADRIBINE
     Indication: MULTIPLE SCLEROSIS
     Dosage: FIRST YEAR FIRST MONTH THERAPY
     Route: 048
     Dates: start: 20190605, end: 20190609
  3. MAVENCLAD [Suspect]
     Active Substance: CLADRIBINE
     Dosage: FIRST YEAR SECOND MONTH THERAPY.
     Route: 048
     Dates: start: 20190705, end: 20190709
  4. GABAPENTIN. [Concomitant]
     Active Substance: GABAPENTIN
     Indication: NEUROPATHY PERIPHERAL
     Dosage: AT AN UNKNOWN DOSAGE FOR 6 YEARS PRIOR TO MAVENCLAD.
  5. MAVENCLAD [Suspect]
     Active Substance: CLADRIBINE
     Dosage: SECOND YEAR FIRST MONTH THERAPY.
     Route: 048
     Dates: start: 20200612, end: 20200616
  6. DULOXETINE. [Suspect]
     Active Substance: DULOXETINE
     Indication: NEUROPATHY PERIPHERAL
     Dosage: AT AN UNKNOWN DOSAGE FOR 6 YEARS PRIOR TO MAVENCLAD.

REACTIONS (17)
  - Seasonal allergy [Not Recovered/Not Resolved]
  - Grip strength decreased [Not Recovered/Not Resolved]
  - Uhthoff^s phenomenon [Unknown]
  - Loss of consciousness [Recovered/Resolved]
  - Fall [Recovered/Resolved]
  - Sensory loss [Unknown]
  - Fracture malunion [Recovering/Resolving]
  - Memory impairment [Recovered/Resolved]
  - Gait disturbance [Not Recovered/Not Resolved]
  - Seasonal affective disorder [Unknown]
  - Radius fracture [Recovering/Resolving]
  - Anxiety [Unknown]
  - Arthralgia [Recovering/Resolving]
  - Chronic obstructive pulmonary disease [Unknown]
  - Depressed mood [Unknown]
  - Vitamin B12 decreased [Unknown]
  - Drug interaction [Unknown]

NARRATIVE: CASE EVENT DATE: 20190727
